FAERS Safety Report 4897175-7 (Version None)
Quarter: 2006Q1

REPORT INFORMATION
  Report Type: 
  Country: None (occurrence: None)
  Receive Date: 20060131
  Receipt Date: 20050408
  Transmission Date: 20060701
  Serious: Yes (Other)
  Sender: FDA-Public Use
  Company Number: US-MERCK-0504USA01595

PATIENT
  Age: 60 Year
  Sex: Female
  Weight: 57 kg

DRUGS (3)
  1. VIOXX [Suspect]
     Indication: ARTHRITIS
     Route: 048
     Dates: start: 20031001, end: 20040901
  2. VIOXX [Suspect]
     Indication: PAIN MANAGEMENT
     Route: 048
     Dates: start: 20031001, end: 20040901
  3. ASPIRIN [Concomitant]
     Route: 048

REACTIONS (4)
  - BLOOD PRESSURE ABNORMAL [None]
  - ISCHAEMIC STROKE [None]
  - SPINAL DISORDER [None]
  - TRANSIENT ISCHAEMIC ATTACK [None]
